FAERS Safety Report 9857492 (Version 1)
Quarter: 2014Q1

REPORT INFORMATION
  Report Type: Spontaneous
  Country: US (occurrence: US)
  Receive Date: 20140131
  Receipt Date: 20140131
  Transmission Date: 20141002
  Serious: Yes (Life-Threatening, Other)
  Sender: FDA-Public Use
  Company Number: PHHY2014US010010

PATIENT
  Age: 65 Year
  Sex: Female

DRUGS (2)
  1. EVEROLIMUS [Suspect]
     Indication: BREAST CANCER
  2. ANASTROZOLE [Concomitant]
     Indication: BREAST CANCER

REACTIONS (12)
  - Acute lung injury [Unknown]
  - Pulmonary toxicity [Unknown]
  - Acute respiratory failure [Unknown]
  - Pulmonary fibrosis [Unknown]
  - Haemoglobin decreased [Unknown]
  - Pulmonary alveolar haemorrhage [Unknown]
  - Lung infiltration [Unknown]
  - Rhonchi [Unknown]
  - Rales [Unknown]
  - Hypoxia [Unknown]
  - Dyspnoea [Unknown]
  - Cough [Unknown]
